FAERS Safety Report 20109865 (Version 1)
Quarter: 2021Q4

REPORT INFORMATION
  Report Type: Spontaneous
  Country: US (occurrence: US)
  Receive Date: 20211124
  Receipt Date: 20211124
  Transmission Date: 20220303
  Serious: No
  Sender: FDA-Public Use
  Company Number: US-GW PHARMA-202111USGW05700

PATIENT

DRUGS (1)
  1. EPIDIOLEX [Suspect]
     Active Substance: CANNABIDIOL
     Indication: Lennox-Gastaut syndrome
     Dosage: 11.55 MG/KG/DAY, 220 MILLIGRAM, QD
     Route: 048
     Dates: start: 201910

REACTIONS (3)
  - Sinus congestion [Not Recovered/Not Resolved]
  - Upper respiratory tract congestion [Unknown]
  - Productive cough [Unknown]
